FAERS Safety Report 16923682 (Version 1)
Quarter: 2019Q4

REPORT INFORMATION
  Report Type: Spontaneous
  Country: US (occurrence: US)
  Receive Date: 20191016
  Receipt Date: 20191016
  Transmission Date: 20200122
  Serious: Yes (Other)
  Sender: FDA-Public Use
  Company Number: US-ROCHE-2431092

PATIENT
  Sex: Female
  Weight: 65.83 kg

DRUGS (1)
  1. XELODA [Suspect]
     Active Substance: CAPECITABINE
     Indication: BREAST CANCER METASTATIC
     Dosage: 500 MG IN MORNING 250MG AT NIGHT WEEK ON AND OFF ; ONGOING: YES
     Route: 048
     Dates: start: 20180101

REACTIONS (3)
  - Memory impairment [Not Recovered/Not Resolved]
  - Basal cell carcinoma [Recovered/Resolved]
  - Hypoacusis [Not Recovered/Not Resolved]

NARRATIVE: CASE EVENT DATE: 2018
